FAERS Safety Report 6187307-5 (Version None)
Quarter: 2009Q2

REPORT INFORMATION
  Report Type: 
  Country: None (occurrence: None)
  Receive Date: 20090512
  Receipt Date: 20090507
  Transmission Date: 20091009
  Serious: Yes (Congenital Anomaly)
  Sender: FDA-Public Use
  Company Number: IT-JNJFOC-20090501824

PATIENT

DRUGS (1)
  1. ITRACONAZOLE [Suspect]
     Indication: DRUG USE FOR UNKNOWN INDICATION

REACTIONS (4)
  - CEREBRAL CALCIFICATION [None]
  - CONGENITAL CYTOMEGALOVIRUS INFECTION [None]
  - HEPATOMEGALY [None]
  - MATERNAL DRUGS AFFECTING FOETUS [None]
